FAERS Safety Report 22117315 (Version 3)
Quarter: 2023Q2

REPORT INFORMATION
  Report Type: Spontaneous
  Country: PK (occurrence: PK)
  Receive Date: 20230320
  Receipt Date: 20230419
  Transmission Date: 20230722
  Serious: Yes (Other)
  Sender: FDA-Public Use
  Company Number: PK-GILEAD-2023-0620549

PATIENT
  Age: 39 Year
  Sex: Male

DRUGS (3)
  1. SOVALDI [Suspect]
     Active Substance: SOFOSBUVIR
     Indication: Chronic hepatitis C
     Dosage: 400 MG, QD
     Route: 065
  2. RIBAVIRIN [Concomitant]
     Active Substance: RIBAVIRIN
     Dosage: 1200 MG, QD
  3. FOLIC ACID [Concomitant]
     Active Substance: FOLIC ACID
     Dosage: 15 MG, QD

REACTIONS (4)
  - Chloropsia [Recovered/Resolved]
  - Chikungunya virus infection [Unknown]
  - Night blindness [Recovered/Resolved]
  - Off label use [Unknown]
